FAERS Safety Report 22972063 (Version 2)
Quarter: 2023Q4

REPORT INFORMATION
  Report Type: Spontaneous
  Country: CZ (occurrence: CZ)
  Receive Date: 20230922
  Receipt Date: 20231026
  Transmission Date: 20240110
  Serious: Yes (Other)
  Sender: FDA-Public Use
  Company Number: CZ-TEVA-2023-CZ-2927348

PATIENT
  Age: 64 Year
  Sex: Female

DRUGS (2)
  1. DOXORUBICIN [Suspect]
     Active Substance: DOXORUBICIN
     Indication: Breast cancer female
     Dosage: 6 CYCLES AS PART OF AC50 REGIMEN
     Route: 065
     Dates: start: 2012
  2. CISPLATIN [Suspect]
     Active Substance: CISPLATIN
     Indication: Breast cancer female
     Dosage: 6 CYCLES AS PART OF AC50 REGIMEN
     Route: 065
     Dates: start: 2012

REACTIONS (1)
  - Haematotoxicity [Recovered/Resolved]

NARRATIVE: CASE EVENT DATE: 20120101
